FAERS Safety Report 7339678-1 (Version None)
Quarter: 2011Q1

REPORT INFORMATION
  Report Type: 
  Country: None (occurrence: None)
  Receive Date: 20110309
  Receipt Date: 20110228
  Transmission Date: 20110831
  Serious: Yes (Other)
  Sender: FDA-Public Use
  Company Number: PT-AMGEN-PRTSP2010006218

PATIENT
  Age: 69 Year
  Sex: Female

DRUGS (15)
  1. INDAPAMIDE [Concomitant]
     Dosage: UNK
  2. ENBREL [Suspect]
     Dosage: 25 MG, QWK
  3. NAPROXEN [Concomitant]
     Dosage: UNK
     Dates: start: 20090910
  4. PLAQUINOL [Concomitant]
     Dosage: UNK
     Dates: start: 20100820
  5. DAFLON                             /00426001/ [Concomitant]
     Dosage: UNK
     Dates: start: 20090115
  6. INDAPAMIDE [Concomitant]
     Dosage: UNK
  7. INDAPAMIDE [Concomitant]
     Dosage: UNK
  8. LASIX [Concomitant]
     Dosage: UNK
     Dates: start: 20090402
  9. ENBREL [Suspect]
     Indication: RHEUMATOID ARTHRITIS
     Dosage: 50 MG, QWK
     Route: 058
     Dates: start: 20090604
  10. FOSAVANCE [Concomitant]
     Dosage: UNK
     Dates: start: 20090604
  11. FOLICIL [Concomitant]
     Dosage: UNK
     Dates: start: 20100820
  12. WARFARIN [Concomitant]
     Dosage: UNK
     Dates: start: 20040101
  13. PREDNISOLONE [Suspect]
     Indication: RHEUMATOID ARTHRITIS
     Dosage: 5 MG, 1X/DAY
  14. GLUCOSAMINE [Concomitant]
     Dosage: UNK
     Dates: start: 20091217
  15. PRETERAX [Concomitant]
     Dosage: UNK
     Dates: start: 20090402

REACTIONS (2)
  - DERMATITIS EXFOLIATIVE [None]
  - HIDRADENITIS [None]
